FAERS Safety Report 4309373-1 (Version None)
Quarter: 2004Q1

REPORT INFORMATION
  Report Type: 
  Country: None (occurrence: None)
  Receive Date: 20040302
  Receipt Date: 20040220
  Transmission Date: 20041129
  Serious: Yes (Hospitalization)
  Sender: FDA-Public Use
  Company Number: US-ROCHE-359724

PATIENT
  Age: 42 Year
  Sex: Male
  Weight: 78.5 kg

DRUGS (5)
  1. FUZEON [Suspect]
     Indication: HIV INFECTION
     Route: 065
     Dates: start: 20030915, end: 20031115
  2. ARANESP [Concomitant]
  3. ELASTASE [Concomitant]
  4. NORVIR [Concomitant]
     Indication: HIV INFECTION
  5. ZITHROMAX [Concomitant]

REACTIONS (3)
  - CANDIDIASIS [None]
  - CHEST PAIN [None]
  - RESPIRATORY TRACT CONGESTION [None]
